FAERS Safety Report 6292372-0 (Version None)
Quarter: 2009Q3

REPORT INFORMATION
  Report Type: 
  Country: None (occurrence: None)
  Receive Date: 20090730
  Receipt Date: 20090730
  Transmission Date: 20100115
  Serious: Yes (Hospitalization)
  Sender: FDA-Public Use
  Company Number: None

PATIENT
  Age: 56 Year
  Sex: Male
  Weight: 94.9 kg

DRUGS (2)
  1. PIROXICAM [Suspect]
     Indication: PAIN
     Dosage: 20 MG EVERY DAY PO
     Route: 048
     Dates: start: 20090701, end: 20090727
  2. METHYLPREDNISOLONE 4MG TAB [Suspect]
     Indication: PAIN
     Dosage: 14 MG EVERY DAY PO
     Route: 048
     Dates: start: 20090724, end: 20090727

REACTIONS (2)
  - DUODENAL ULCER HAEMORRHAGE [None]
  - GASTRIC HAEMORRHAGE [None]
